FAERS Safety Report 23511889 (Version 1)
Quarter: 2024Q1

REPORT INFORMATION
  Report Type: Report from Study
  Country: EG (occurrence: None)
  Receive Date: 20240212
  Receipt Date: 20240212
  Transmission Date: 20240410
  Serious: Yes (Hospitalization, Other)
  Sender: FDA-Public Use
  Company Number: 2023A293292

PATIENT
  Age: 24819 Day
  Sex: Female

DRUGS (3)
  1. IMFINZI [Suspect]
     Active Substance: DURVALUMAB
     Indication: Cholangiocarcinoma
     Route: 041
     Dates: start: 20231029
  2. CISPLATIN [Concomitant]
     Active Substance: CISPLATIN
     Dosage: 50 MG D1
  3. GEMZAR [Concomitant]
     Active Substance: GEMCITABINE HYDROCHLORIDE
     Dosage: 1 G D1, D8

REACTIONS (5)
  - Immunodeficiency [Unknown]
  - Platelet count decreased [Unknown]
  - Anaemia [Unknown]
  - Metastases to lymph nodes [Unknown]
  - Metastases to lung [Unknown]
